FAERS Safety Report 6704742-4 (Version None)
Quarter: 2010Q2

REPORT INFORMATION
  Report Type: 
  Country: None (occurrence: None)
  Receive Date: 20100430
  Receipt Date: 20100419
  Transmission Date: 20101027
  Serious: Yes (Death)
  Sender: FDA-Public Use
  Company Number: US-GENENTECH-283025

PATIENT

DRUGS (8)
  1. RITUXIMAB [Suspect]
     Indication: LYMPHOPROLIFERATIVE DISORDER
     Dosage: 375 MG/M2, Q4W
     Route: 065
  2. RITUXIMAB [Suspect]
     Indication: MANTLE CELL LYMPHOMA
  3. RITUXIMAB [Suspect]
     Indication: CHRONIC LYMPHOCYTIC LEUKAEMIA
  4. FLUDARABINE [Suspect]
     Indication: LYMPHOPROLIFERATIVE DISORDER
     Dosage: 25 MG/M2, UNK
     Route: 042
  5. FLAVOPIRIDOL [Suspect]
     Indication: LYMPHOPROLIFERATIVE DISORDER
     Route: 040
  6. BACTRIM [Concomitant]
     Indication: PROPHYLAXIS
     Dosage: UNK
  7. VALTREX [Concomitant]
     Indication: PROPHYLAXIS
     Dosage: 400 MG, TID
  8. ACYCLOVIR [Concomitant]
     Indication: PROPHYLAXIS
     Dosage: 400 MG, TID

REACTIONS (29)
  - ANAEMIA [None]
  - APPENDICITIS [None]
  - CONFUSIONAL STATE [None]
  - CONVULSION [None]
  - CORONARY ARTERY DISEASE [None]
  - CYTOMEGALOVIRUS INFECTION [None]
  - DECREASED APPETITE [None]
  - DEVICE RELATED INFECTION [None]
  - DIARRHOEA [None]
  - FATIGUE [None]
  - FEBRILE NEUTROPENIA [None]
  - HEAD AND NECK CANCER [None]
  - HEPATIC CIRRHOSIS [None]
  - HYPOCALCAEMIA [None]
  - IDIOPATHIC THROMBOCYTOPENIC PURPURA [None]
  - LEUKOPENIA [None]
  - MALIGNANT NEOPLASM PROGRESSION [None]
  - MANTLE CELL LYMPHOMA [None]
  - NAUSEA [None]
  - NEUTROPENIA [None]
  - ORAL CANDIDIASIS [None]
  - PANCYTOPENIA [None]
  - PNEUMONIA BACTERIAL [None]
  - RENAL FAILURE ACUTE [None]
  - THROMBOCYTOPENIA [None]
  - TUMOUR LYSIS SYNDROME [None]
  - UPPER RESPIRATORY TRACT INFECTION [None]
  - URINARY TRACT INFECTION [None]
  - VOMITING [None]
